FAERS Safety Report 9977399 (Version 1)
Quarter: 2014Q1

REPORT INFORMATION
  Report Type: Report from Study
  Country: US (occurrence: US)
  Receive Date: 20140306
  Receipt Date: 20140306
  Transmission Date: 20141002
  Serious: No
  Sender: FDA-Public Use
  Company Number: US-ABBVIE-13P-163-1168100-00

PATIENT
  Age: 45 Year
  Sex: Female

DRUGS (4)
  1. HUMIRA [Suspect]
     Indication: CROHN^S DISEASE
     Dates: start: 20130924, end: 20130924
  2. HUMIRA [Suspect]
     Dates: start: 201310, end: 201310
  3. HUMIRA [Suspect]
     Dates: start: 201310, end: 20131010
  4. PANTOPRAZOLE [Concomitant]
     Indication: DYSPEPSIA

REACTIONS (8)
  - Weight abnormal [Unknown]
  - Mental disorder [Unknown]
  - Pain [Unknown]
  - Nervousness [Unknown]
  - Blister [Unknown]
  - Insomnia [Unknown]
  - Agitation [Unknown]
  - Anxiety [Not Recovered/Not Resolved]
